FAERS Safety Report 6155615-X (Version None)
Quarter: 2009Q2

REPORT INFORMATION
  Report Type: 
  Country: None (occurrence: None)
  Receive Date: 20090413
  Receipt Date: 20090413
  Transmission Date: 20091009
  Serious: No
  Sender: FDA-Public Use
  Company Number: None

PATIENT
  Age: 80 Year
  Sex: Female
  Weight: 79.3795 kg

DRUGS (1)
  1. ALPRAZOLAM [Suspect]
     Indication: DEPRESSION
     Dosage: 1 TWICE DAILY
     Dates: start: 19960101, end: 20090312

REACTIONS (3)
  - FATIGUE [None]
  - INSOMNIA [None]
  - PRODUCT COUNTERFEIT [None]
